FAERS Safety Report 25918868 (Version 2)
Quarter: 2025Q4

REPORT INFORMATION
  Report Type: Report from Study
  Country: CA (occurrence: CA)
  Receive Date: 20251014
  Receipt Date: 20251106
  Transmission Date: 20260118
  Serious: Yes (Hospitalization, Other)
  Sender: TAKEDA
  Company Number: CA-TAKEDA-2025TUS089238

PATIENT
  Age: 34 Year
  Sex: Female

DRUGS (8)
  1. VEDOLIZUMAB [Suspect]
     Active Substance: VEDOLIZUMAB
     Indication: Crohn^s disease
     Dosage: 300 MILLIGRAM
  2. VEDOLIZUMAB [Suspect]
     Active Substance: VEDOLIZUMAB
     Dosage: 300 MILLIGRAM, Q4WEEKS
     Dates: start: 20221115
  3. VEDOLIZUMAB [Suspect]
     Active Substance: VEDOLIZUMAB
     Dosage: 300 MILLIGRAM, MONTHLY
  4. ENTOCORT [Concomitant]
     Active Substance: BUDESONIDE
     Dosage: UNK
  5. OMEGA 3 [Concomitant]
     Active Substance: CAPSAICIN
     Dosage: 1000 MILLIGRAM
  6. COENZYME Q10 [Concomitant]
     Active Substance: DIETARY SUPPLEMENT\UBIDECARENONE
     Dosage: 10 MILLIGRAM
  7. VITAMIN C [Concomitant]
     Active Substance: ASCORBIC ACID
     Dosage: 520 MILLIGRAM
  8. VITAMIN D NOS [Concomitant]
     Active Substance: CHOLECALCIFEROL\ERGOCALCIFEROL
     Dosage: 1000 MILLIGRAM

REACTIONS (2)
  - Abortion spontaneous [Recovered/Resolved]
  - Pregnancy [Recovered/Resolved]
